FAERS Safety Report 4567024-5 (Version None)
Quarter: 2005Q1

REPORT INFORMATION
  Report Type: 
  Country: None (occurrence: None)
  Receive Date: 20050126
  Receipt Date: 20050110
  Transmission Date: 20050727
  Serious: Yes (Hospitalization, Other)
  Sender: FDA-Public Use
  Company Number: USA041183943

PATIENT
  Age: 51 Year
  Sex: Female

DRUGS (2)
  1. EVISTA [Suspect]
     Indication: OSTEOPENIA
     Dosage: 60 MG
     Dates: start: 20040819, end: 20040101
  2. HORMONE REPLACEMENT THERAPY [Concomitant]

REACTIONS (6)
  - ENDOMETRIAL DISORDER [None]
  - ENDOMETRIOSIS [None]
  - MENOPAUSAL DISORDER [None]
  - POSTMENOPAUSAL HAEMORRHAGE [None]
  - UTERINE ATROPHY [None]
  - VAGINAL HAEMORRHAGE [None]
